FAERS Safety Report 6947474-X (Version None)
Quarter: 2010Q3

REPORT INFORMATION
  Report Type: 
  Country: None (occurrence: None)
  Receive Date: 20100825
  Receipt Date: 20100816
  Transmission Date: 20110219
  Serious: Yes (Hospitalization, Other)
  Sender: FDA-Public Use
  Company Number: 2010US003313

PATIENT
  Age: 27 Year
  Sex: Female

DRUGS (1)
  1. PROGRAF [Suspect]
     Indication: LUNG TRANSPLANT
     Dosage: 4 MG, UID/QD, ORAL
     Route: 048
     Dates: start: 20080204

REACTIONS (12)
  - ECZEMA [None]
  - HERPES ZOSTER [None]
  - LUNG INFECTION PSEUDOMONAL [None]
  - LUNG TRANSPLANT REJECTION [None]
  - NEPHROLITHIASIS [None]
  - ORGANISING PNEUMONIA [None]
  - OSTEONECROSIS [None]
  - PNEUMONITIS [None]
  - RESPIRATORY TRACT INFECTION BACTERIAL [None]
  - ROSEOLOVIRUS TEST POSITIVE [None]
  - STAPHYLOCOCCAL INFECTION [None]
  - URINARY TRACT INFECTION PSEUDOMONAL [None]
